FAERS Safety Report 9537322 (Version 3)
Quarter: 2013Q4

REPORT INFORMATION
  Report Type: Spontaneous
  Country: FR (occurrence: JP)
  Receive Date: 20130919
  Receipt Date: 20131003
  Transmission Date: 20140711
  Serious: Yes (Disabling, Other)
  Sender: FDA-Public Use
  Company Number: FR-BAYER-2013-096078

PATIENT
  Age: 34 Year
  Sex: Female
  Weight: 39 kg

DRUGS (4)
  1. QLAIRA [Suspect]
     Indication: CONTRACEPTION
     Dosage: UNK
     Route: 048
     Dates: start: 201210, end: 20130817
  2. QLAIRA [Suspect]
     Indication: ENDOMETRIOSIS
  3. DEPROMEL [Concomitant]
     Dosage: DAILY DOSE 50 MG
     Route: 048
     Dates: start: 2007
  4. DEPAKENE [Concomitant]
     Dosage: DAILY DOSE 200 MG
     Route: 048
     Dates: start: 2007

REACTIONS (6)
  - Glycosylated haemoglobin increased [None]
  - Asthenia [None]
  - Diabetic ketoacidosis [Recovered/Resolved]
  - Malaise [Recovered/Resolved]
  - Weight decreased [Recovered/Resolved]
  - Type 1 diabetes mellitus [None]
